FAERS Safety Report 6369258-6 (Version None)
Quarter: 2009Q3

REPORT INFORMATION
  Report Type: 
  Country: None (occurrence: None)
  Receive Date: 20090916
  Receipt Date: 20090908
  Transmission Date: 20100115
  Serious: Yes (Hospitalization)
  Sender: FDA-Public Use
  Company Number: ADR20442009

PATIENT
  Age: 1 Week
  Sex: Male

DRUGS (2)
  1. LAMOTRIGINE [Suspect]
     Indication: POISONING DELIBERATE
     Dosage: ORAL
     Route: 048
  2. ACETAMINOPHEN [Concomitant]

REACTIONS (5)
  - ACCIDENTAL OVERDOSE [None]
  - DECREASED APPETITE [None]
  - GRAND MAL CONVULSION [None]
  - IRRITABILITY [None]
  - SOCIAL AVOIDANT BEHAVIOUR [None]
